FAERS Safety Report 23326796 (Version 1)
Quarter: 2023Q4

REPORT INFORMATION
  Report Type: Spontaneous
  Country: US (occurrence: US)
  Receive Date: 20231221
  Receipt Date: 20231221
  Transmission Date: 20240110
  Serious: Yes (Hospitalization)
  Sender: FDA-Public Use
  Company Number: US-BRISTOL-MYERS SQUIBB COMPANY-2023-185246

PATIENT
  Age: 81 Year
  Sex: Female
  Weight: 38.56 kg

DRUGS (1)
  1. REVLIMID [Suspect]
     Active Substance: LENALIDOMIDE
     Indication: Plasma cell myeloma
     Dosage: DAILY
     Route: 048

REACTIONS (5)
  - Decreased appetite [Unknown]
  - Speech disorder [Unknown]
  - Mobility decreased [Unknown]
  - Asthenia [Unknown]
  - Haemoglobin decreased [Unknown]
